FAERS Safety Report 8337170-9 (Version None)
Quarter: 2012Q2

REPORT INFORMATION
  Report Type: 
  Country: None (occurrence: None)
  Receive Date: 20120504
  Receipt Date: 20120426
  Transmission Date: 20120825
  Serious: Yes (Other)
  Sender: FDA-Public Use
  Company Number: PHHY2012DE036524

PATIENT
  Sex: Male
  Weight: 107 kg

DRUGS (9)
  1. PLATELET AGGREGATION INHIBITORS [Concomitant]
  2. ANTICOAGULANTS [Concomitant]
  3. BETA BLOCKING AGENTS [Concomitant]
  4. PROVAS MAXX [Suspect]
     Dosage: 320/25 MG/DAY
     Route: 048
     Dates: start: 20110111
  5. EXFORGE [Concomitant]
     Dosage: UNK
     Dates: start: 20120229
  6. NITRATES [Concomitant]
  7. PROVAS MAXX [Suspect]
     Indication: HYPERTENSION
     Dosage: UNK
     Route: 048
     Dates: start: 20090313, end: 20110111
  8. DIURETICS [Concomitant]
     Dosage: UNK
     Dates: start: 20110217
  9. ORAL ANTIDIABETICS [Concomitant]
     Indication: DIABETES MELLITUS

REACTIONS (2)
  - ATRIAL FIBRILLATION [None]
  - BLOOD PRESSURE DECREASED [None]
